FAERS Safety Report 6838513-5 (Version None)
Quarter: 2010Q3

REPORT INFORMATION
  Report Type: 
  Country: None (occurrence: None)
  Receive Date: 20100713
  Receipt Date: 20070614
  Transmission Date: 20110219
  Serious: No
  Sender: FDA-Public Use
  Company Number: US-PFIZER INC-2007049128

PATIENT
  Sex: Female
  Weight: 90.9 kg

DRUGS (4)
  1. CHANTIX [Suspect]
     Indication: SMOKING CESSATION THERAPY
     Dates: start: 20070101
  2. ALPRAZOLAM [Suspect]
     Indication: ANXIETY
  3. ALPRAZOLAM [Suspect]
     Indication: NERVOUSNESS
  4. PERCOCET [Concomitant]

REACTIONS (7)
  - ANXIETY [None]
  - DECREASED APPETITE [None]
  - DIZZINESS [None]
  - INCORRECT DOSE ADMINISTERED [None]
  - NAUSEA [None]
  - PALPITATIONS [None]
  - VOMITING [None]
